FAERS Safety Report 6575473-9 (Version None)
Quarter: 2010Q1

REPORT INFORMATION
  Report Type: 
  Country: None (occurrence: None)
  Receive Date: 20100209
  Receipt Date: 20100129
  Transmission Date: 20100710
  Serious: Yes (Other)
  Sender: FDA-Public Use
  Company Number: US-PFIZER INC-2010012890

PATIENT
  Sex: Female
  Weight: 108.84 kg

DRUGS (12)
  1. CHANTIX [Suspect]
     Indication: SMOKING CESSATION THERAPY
     Dosage: 0.5 MG, 1X/DAY
     Route: 048
     Dates: start: 20091201
  2. CHANTIX [Suspect]
     Dosage: 1 MG, 2X/DAY
     Dates: start: 20091201, end: 20100101
  3. NICOTINE [Suspect]
     Dosage: UNK
     Route: 048
  4. METFORMIN [Concomitant]
     Indication: DIABETES MELLITUS
     Dosage: 500 MG, 2X/DAY
     Route: 048
  5. AMLODIPINE BESILATE [Concomitant]
     Indication: HYPERTENSION
     Dosage: 10 MG, 3X/DAY
     Route: 048
  6. LEVOTHYROXINE [Concomitant]
     Indication: HYPOTHYROIDISM
     Dosage: 300 UG, 4X/DAY
     Route: 048
  7. CLONAZEPAM [Concomitant]
     Indication: PANIC ATTACK
     Dosage: 2 MG, AS NEEDED
     Route: 048
  8. CLONAZEPAM [Concomitant]
     Indication: ANXIETY
  9. NEURONTIN [Concomitant]
     Indication: PAIN
     Dosage: 800 MG, 2X/DAY
     Route: 048
  10. RITALIN [Concomitant]
     Dosage: 10 MG, UNK
     Route: 048
  11. REQUIP [Concomitant]
  12. AMPHETAMINE SULFATE [Concomitant]

REACTIONS (16)
  - ABDOMINAL PAIN UPPER [None]
  - ABNORMAL BEHAVIOUR [None]
  - ABNORMAL DREAMS [None]
  - AGGRESSION [None]
  - AGITATION [None]
  - AMNESIA [None]
  - COGNITIVE DISORDER [None]
  - DEPRESSION [None]
  - DISTURBANCE IN ATTENTION [None]
  - DRUG INEFFECTIVE [None]
  - HICCUPS [None]
  - HOSTILITY [None]
  - MANIA [None]
  - PANIC ATTACK [None]
  - SUICIDE ATTEMPT [None]
  - WITHDRAWAL SYNDROME [None]
